FAERS Safety Report 6194818-5 (Version None)
Quarter: 2009Q2

REPORT INFORMATION
  Report Type: 
  Country: None (occurrence: None)
  Receive Date: 20090519
  Receipt Date: 20080521
  Transmission Date: 20091009
  Serious: No
  Sender: FDA-Public Use
  Company Number: US-TYCO HEALTHCARE/MALLINCKRODT-T200800867

PATIENT

DRUGS (1)
  1. METHADONE [Suspect]
     Indication: BACK PAIN
     Dosage: TABLETS CRUSHED AND MIXED WITH WATER IN 100 CC CUP
     Route: 048
     Dates: start: 20080301

REACTIONS (3)
  - DRUG INEFFECTIVE [None]
  - VOMITING [None]
  - WRONG TECHNIQUE IN DRUG USAGE PROCESS [None]
